FAERS Safety Report 7512772-8 (Version None)
Quarter: 2011Q2

REPORT INFORMATION
  Report Type: 
  Country: None (occurrence: None)
  Receive Date: 20110531
  Receipt Date: 20110524
  Transmission Date: 20111010
  Serious: Yes (Hospitalization)
  Sender: FDA-Public Use
  Company Number: B0668195A

PATIENT
  Sex: Female

DRUGS (11)
  1. PREDNISONE [Concomitant]
     Dosage: 10MG PER DAY
     Route: 048
  2. RITUXAN [Suspect]
     Indication: RHEUMATOID ARTHRITIS
     Dosage: 1000MG SEE DOSAGE TEXT
     Route: 042
     Dates: start: 20091201, end: 20091201
  3. TRAMADOL HCL [Suspect]
     Dosage: 200MG PER DAY
     Route: 048
  4. NEXIUM [Concomitant]
     Dosage: 40MG PER DAY
     Route: 048
  5. LASIX [Concomitant]
     Dosage: 20MG PER DAY
     Route: 048
  6. VALACYCLOVIR HYDROCHLORIDE [Suspect]
     Route: 048
     Dates: start: 20100601, end: 20100601
  7. MORPHINE SULFATE [Suspect]
     Dosage: 60MG TWICE PER DAY
     Route: 048
  8. METHOTREXATE [Concomitant]
     Indication: RHEUMATOID ARTHRITIS
     Dosage: 10MG WEEKLY
     Route: 058
     Dates: start: 20080901
  9. ACTONEL [Concomitant]
     Dosage: 35MG WEEKLY
     Route: 048
  10. PREVISCAN [Concomitant]
     Route: 048
  11. MORPHINE SULFATE [Suspect]
     Route: 048

REACTIONS (6)
  - INTERSTITIAL LUNG DISEASE [None]
  - COUGH [None]
  - ASTHENIA [None]
  - PYREXIA [None]
  - DYSPNOEA [None]
  - ALVEOLITIS [None]
